FAERS Safety Report 12555782 (Version 1)
Quarter: 2016Q3

REPORT INFORMATION
  Report Type: Spontaneous
  Country: US (occurrence: None)
  Receive Date: 20160713
  Receipt Date: 20160713
  Transmission Date: 20161109
  Serious: Yes (Other)
  Sender: FDA-Public Use
  Company Number: None

PATIENT
  Age: 61 Year
  Sex: Female

DRUGS (23)
  1. LAMICTAL [Concomitant]
     Active Substance: LAMOTRIGINE
  2. COPAXONE [Suspect]
     Active Substance: GLATIRAMER ACETATE
     Indication: MULTIPLE SCLEROSIS
     Route: 058
     Dates: start: 20130124
  3. FENTANYL. [Concomitant]
     Active Substance: FENTANYL
  4. ACETAMINOPHEN\HYDROCODONE BITARTRATE [Concomitant]
     Active Substance: ACETAMINOPHEN\HYDROCODONE BITARTRATE
  5. CONCERTA [Concomitant]
     Active Substance: METHYLPHENIDATE HYDROCHLORIDE
  6. PROMETRIUM [Concomitant]
     Active Substance: PROGESTERONE
  7. FLUOXETINE [Concomitant]
     Active Substance: FLUOXETINE HYDROCHLORIDE
  8. ESTRADIOL. [Concomitant]
     Active Substance: ESTRADIOL
  9. VENTOLIN [Concomitant]
     Active Substance: ALBUTEROL SULFATE
  10. LYRICA [Concomitant]
     Active Substance: PREGABALIN
  11. VITAMIN D3 [Concomitant]
     Active Substance: CHOLECALCIFEROL
  12. CLONAZEPAM. [Concomitant]
     Active Substance: CLONAZEPAM
  13. COLACE [Concomitant]
     Active Substance: DOCUSATE SODIUM
  14. ADVAIR DISKUS [Concomitant]
     Active Substance: FLUTICASONE PROPIONATE\SALMETEROL XINAFOATE
  15. FIBER FORMULA SUPPLEMENT [Concomitant]
  16. VITAMIN B12 [Concomitant]
     Active Substance: CYANOCOBALAMIN
  17. MULTIVITAMIN [Concomitant]
     Active Substance: VITAMINS
  18. KEPPRA [Concomitant]
     Active Substance: LEVETIRACETAM
  19. KETAMINE/GABAPENTIN/CLONIDINE CREAM [Concomitant]
  20. LORATADINE. [Concomitant]
     Active Substance: LORATADINE
  21. FISH OIL [Concomitant]
     Active Substance: FISH OIL
  22. PROZAC [Concomitant]
     Active Substance: FLUOXETINE HYDROCHLORIDE
  23. BACLOPHEN [Concomitant]

REACTIONS (2)
  - Drug dose omission [None]
  - Neoplasm malignant [None]

NARRATIVE: CASE EVENT DATE: 20160526
